FAERS Safety Report 11059140 (Version 1)
Quarter: 2015Q2

REPORT INFORMATION
  Report Type: Report from Study
  Country: CO (occurrence: CO)
  Receive Date: 20150423
  Receipt Date: 20150423
  Transmission Date: 20150821
  Serious: Yes (Death, Hospitalization, Other)
  Sender: FDA-Public Use
  Company Number: CO-ABBVIE-15K-036-1337226-00

PATIENT
  Age: 51 Year
  Sex: Male
  Weight: 60 kg

DRUGS (1)
  1. HUMIRA [Suspect]
     Active Substance: ADALIMUMAB
     Indication: COLITIS ULCERATIVE
     Route: 058
     Dates: start: 20131202

REACTIONS (3)
  - Lymphoma [Not Recovered/Not Resolved]
  - Respiratory arrest [Fatal]
  - Colitis ulcerative [Unknown]

NARRATIVE: CASE EVENT DATE: 20150114
